FAERS Safety Report 9334236 (Version 1)
Quarter: 2013Q2

REPORT INFORMATION
  Report Type: Spontaneous
  Country: US (occurrence: US)
  Receive Date: 20130606
  Receipt Date: 20130606
  Transmission Date: 20140414
  Serious: No
  Sender: FDA-Public Use
  Company Number: US-AMGEN-USASP2013010388

PATIENT
  Age: 79 Year
  Sex: Female

DRUGS (5)
  1. PROLIA [Suspect]
     Indication: OSTEOPOROSIS POSTMENOPAUSAL
     Dosage: 60 MG, Q6MO
     Dates: start: 20120912
  2. VITAMIN D                          /00107901/ [Concomitant]
  3. VITAMIN B-12 [Concomitant]
  4. ASPIRIN [Concomitant]
  5. PRILOSEC                           /00661201/ [Concomitant]

REACTIONS (2)
  - Skin burning sensation [Unknown]
  - Dermatitis [Recovering/Resolving]
